FAERS Safety Report 8593609-5 (Version None)
Quarter: 2012Q3

REPORT INFORMATION
  Report Type: 
  Country: None (occurrence: None)
  Receive Date: 20120814
  Receipt Date: 20120809
  Transmission Date: 20120928
  Serious: Yes (Other)
  Sender: FDA-Public Use
  Company Number: US-ROCHE-788904

PATIENT
  Sex: Male
  Weight: 66.738 kg

DRUGS (4)
  1. ACCUTANE [Suspect]
     Indication: ACNE
     Route: 065
     Dates: start: 19970601, end: 19970901
  2. CLEOCIN CREAM [Concomitant]
  3. ERYTHROMYCIN [Concomitant]
  4. RETIN-A [Concomitant]

REACTIONS (4)
  - STRESS [None]
  - COLITIS ULCERATIVE [None]
  - INFLAMMATORY BOWEL DISEASE [None]
  - INTESTINAL HAEMORRHAGE [None]
